FAERS Safety Report 22266093 (Version 2)
Quarter: 2023Q2

REPORT INFORMATION
  Report Type: Spontaneous
  Country: US (occurrence: US)
  Receive Date: 20230428
  Receipt Date: 20230512
  Transmission Date: 20230721
  Serious: Yes (Life-Threatening, Hospitalization, Other)
  Sender: FDA-Public Use
  Company Number: US-TEVA-2023-US-2879228

PATIENT
  Age: 56 Year
  Sex: Female

DRUGS (22)
  1. FLUDARABINE [Suspect]
     Active Substance: FLUDARABINE PHOSPHATE
     Indication: Immunosuppressant drug therapy
     Dosage: RECEIVED UNDER CONDITIONING REGIMEN
     Route: 065
     Dates: start: 201905
  2. MELPHALAN [Suspect]
     Active Substance: MELPHALAN
     Indication: Immunosuppressant drug therapy
     Dosage: RECEIVED UNDER CONDITIONING REGIMEN
     Route: 065
     Dates: start: 201905
  3. METHYLPREDNISOLONE [Suspect]
     Active Substance: METHYLPREDNISOLONE
     Indication: Acute graft versus host disease
     Dosage: 1.6 MG/KG
     Route: 065
     Dates: start: 201908
  4. PREDNISONE [Suspect]
     Active Substance: PREDNISONE
     Indication: Acute graft versus host disease
     Dosage: .5 MG/KG DAILY; ONCE DAILY
     Route: 065
     Dates: start: 201908
  5. PREDNISONE [Suspect]
     Active Substance: PREDNISONE
     Dosage: 10 MILLIGRAM DAILY; ONCE DAILY, TAPERED DOSE
     Route: 065
     Dates: start: 20190912
  6. TACROLIMUS [Suspect]
     Active Substance: TACROLIMUS
     Indication: Prophylaxis against graft versus host disease
     Dosage: RECEIVED AFTER ALLOGENEIC PERIPHERAL HAEMATOPOIETIC STEM CELL TRANSPLANT
     Route: 065
     Dates: start: 201905
  7. TACROLIMUS [Suspect]
     Active Substance: TACROLIMUS
     Dosage: THERAPY RESTARTED AFTER DISCONTINUED FOR A SHORT DURATION; DOSE UNKNOWN
     Route: 065
     Dates: start: 2019, end: 201908
  8. ALEMTUZUMAB [Suspect]
     Active Substance: ALEMTUZUMAB
     Indication: Prophylaxis against graft versus host disease
     Dosage: RECEIVED AFTER ALLOGENEIC PERIPHERAL HAEMATOPOIETIC STEM CELL TRANSPLANT
     Route: 065
     Dates: start: 201905
  9. SIROLIMUS [Suspect]
     Active Substance: SIROLIMUS
     Indication: Prophylaxis against graft versus host disease
     Dosage: RECEIVED AFTER ALLOGENEIC PERIPHERAL HAEMATOPOIETIC STEM CELL TRANSPLANT
     Route: 065
     Dates: start: 2019
  10. RITUXIMAB [Suspect]
     Active Substance: RITUXIMAB
     Indication: Evidence based treatment
     Route: 041
     Dates: start: 201909, end: 201909
  11. RITUXIMAB [Suspect]
     Active Substance: RITUXIMAB
     Indication: Epstein-Barr viraemia
     Dosage: THERAPY REINITIATED; DOSE UNKNOWN
     Route: 041
     Dates: start: 2019, end: 2019
  12. OFATUMUMAB [Suspect]
     Active Substance: OFATUMUMAB
     Indication: Post transplant lymphoproliferative disorder
     Dosage: 300MG
     Route: 065
     Dates: start: 2019, end: 2019
  13. OFATUMUMAB [Suspect]
     Active Substance: OFATUMUMAB
     Dosage: 1000MG, DOSE INCREASED
     Route: 065
     Dates: start: 2019, end: 2019
  14. OFATUMUMAB [Suspect]
     Active Substance: OFATUMUMAB
     Dosage: 2000MG, RECEIVED INCREASED DOSE ON DAYS 10,13,17 AND 21 OF HOSPITALISATION
     Route: 065
     Dates: start: 2019
  15. VALACYCLOVIR [Concomitant]
     Active Substance: VALACYCLOVIR HYDROCHLORIDE
     Indication: Antiviral prophylaxis
     Route: 065
  16. FLUCONAZOLE [Concomitant]
     Active Substance: FLUCONAZOLE
     Indication: Antifungal prophylaxis
     Route: 065
  17. LETERMOVIR [Concomitant]
     Active Substance: LETERMOVIR
     Indication: Antiviral prophylaxis
     Route: 065
  18. SULFAMETHOXAZOLE\TRIMETHOPRIM [Concomitant]
     Active Substance: SULFAMETHOXAZOLE\TRIMETHOPRIM
     Indication: Antibiotic prophylaxis
     Route: 065
  19. HYDROCORTISONE [Concomitant]
     Active Substance: HYDROCORTISONE
     Indication: Infusion related reaction
     Route: 065
  20. HYDROCORTISONE [Concomitant]
     Active Substance: HYDROCORTISONE
     Indication: Pyrexia
  21. HYDROCORTISONE [Concomitant]
     Active Substance: HYDROCORTISONE
     Indication: Hypotension
  22. HYDROCORTISONE [Concomitant]
     Active Substance: HYDROCORTISONE
     Indication: Chills

REACTIONS (10)
  - Post transplant lymphoproliferative disorder [Recovering/Resolving]
  - Infusion related reaction [Unknown]
  - Hypotension [Unknown]
  - Pyrexia [Unknown]
  - Chills [Unknown]
  - Septic shock [Recovering/Resolving]
  - Klebsiella infection [Recovering/Resolving]
  - Bacteraemia [Recovering/Resolving]
  - Drug ineffective [Unknown]
  - Off label use [Unknown]

NARRATIVE: CASE EVENT DATE: 20190101
